FAERS Safety Report 6241545-1 (Version None)
Quarter: 2009Q2

REPORT INFORMATION
  Report Type: 
  Country: None (occurrence: None)
  Receive Date: 20090617
  Receipt Date: 20071207
  Transmission Date: 20091009
  Serious: No
  Sender: FDA-Public Use
  Company Number: 270072

PATIENT
  Sex: Male

DRUGS (4)
  1. LEVEMIR [Suspect]
     Indication: DIABETES MELLITUS
     Dosage: SUBCUTANEOUS
     Route: 058
  2. NOVOLOG MIX 70/30 [Suspect]
     Indication: DIABETES MELLITUS
     Dosage: 50 , QD, SUBCUTANEOUS
     Route: 058
  3. GLUCOPHAGE /00082701/ (METFORMIN) [Concomitant]
  4. AMARYL [Concomitant]

REACTIONS (1)
  - BLOOD GLUCOSE INCREASED [None]
